FAERS Safety Report 9087134 (Version 1)
Quarter: 2013Q1

REPORT INFORMATION
  Report Type: Report from Study
  Country: US (occurrence: US)
  Receive Date: 20130131
  Receipt Date: 20130131
  Transmission Date: 20140127
  Serious: No
  Sender: FDA-Public Use
  Company Number: US-ABBOTT-12P-163-0993293-00

PATIENT
  Age: 69 Year
  Sex: Female

DRUGS (7)
  1. HUMIRA [Suspect]
     Indication: CROHN^S DISEASE
     Dates: start: 20120925, end: 20120925
  2. HUMIRA [Suspect]
     Dates: start: 20121009
  3. 6-MP [Concomitant]
     Indication: CROHN^S DISEASE
     Dosage: DAILY
  4. ASACOL [Concomitant]
     Indication: CROHN^S DISEASE
  5. UNIRETIC [Concomitant]
     Indication: BLOOD PRESSURE
     Dosage: 15/25MG HALF TABLET
  6. SIMVASTATIN [Concomitant]
     Indication: BLOOD CHOLESTEROL
     Dosage: DAILY
  7. MULTIPLE VITAMINS [Concomitant]
     Indication: PRODUCT USED FOR UNKNOWN INDICATION
     Dosage: DAILY

REACTIONS (2)
  - Incorrect dose administered [Unknown]
  - Injection site pain [Recovered/Resolved]
